FAERS Safety Report 13575506 (Version 1)
Quarter: 2017Q2

REPORT INFORMATION
  Report Type: Report from Study
  Country: BR (occurrence: BR)
  Receive Date: 20170524
  Receipt Date: 20170524
  Transmission Date: 20170830
  Serious: Yes (Hospitalization, Other)
  Sender: FDA-Public Use
  Company Number: BR-UCBSA-2017019712

PATIENT
  Age: 37 Year
  Sex: Male

DRUGS (1)
  1. LEVETIRACETAM. [Suspect]
     Active Substance: LEVETIRACETAM
     Indication: EPILEPSY
     Dosage: 750 MG, 2X/DAY (BID)
     Route: 048
     Dates: start: 201610

REACTIONS (4)
  - Brain oedema [Recovered/Resolved]
  - Thrombosis [Recovered/Resolved]
  - Device issue [Unknown]
  - Post procedural complication [Unknown]

NARRATIVE: CASE EVENT DATE: 201702
